FAERS Safety Report 19225900 (Version 2)
Quarter: 2021Q3

REPORT INFORMATION
  Report Type: Spontaneous
  Country: US (occurrence: US)
  Receive Date: 20210506
  Receipt Date: 20210802
  Transmission Date: 20211014
  Serious: Yes (Other)
  Sender: FDA-Public Use
  Company Number: US-TEVA-2021-US-1907241

PATIENT
  Age: 6 Year
  Sex: Female

DRUGS (11)
  1. HYDROCORTISONE. [Concomitant]
     Active Substance: HYDROCORTISONE
     Indication: PROPHYLAXIS
     Route: 037
  2. DEXTROMETHORPHAN [Suspect]
     Active Substance: DEXTROMETHORPHAN
     Indication: NEUROTOXICITY
     Route: 048
  3. METHOTREXATE. [Interacting]
     Active Substance: METHOTREXATE
     Route: 048
  4. LORAZEPAM. [Concomitant]
     Active Substance: LORAZEPAM
     Indication: NEUROTOXICITY
     Dosage: (0.05 MG/KGX2)
     Route: 065
  5. DEXTROMETHORPHAN [Suspect]
     Active Substance: DEXTROMETHORPHAN
     Indication: PROPHYLAXIS
     Dosage: 1 TO 2 MG/KG GIVEN AS A SINGLE DOSE ON DAY 0 AND DAY 7 AFTER METHOTREXATE ADMINISTRATION
     Route: 048
  6. DEXAMETHASONE. [Concomitant]
     Active Substance: DEXAMETHASONE
     Indication: NEUROTOXICITY
     Dosage: 4 DOSES OF IV DEXAMETHASONE
     Route: 042
  7. METHOTREXATE. [Suspect]
     Active Substance: METHOTREXATE
     Indication: B PRECURSOR TYPE ACUTE LEUKAEMIA
     Route: 037
  8. METHOTREXATE. [Interacting]
     Active Substance: METHOTREXATE
     Dosage: A CYCLE OF ESCALATING?DOSE (CAPIZZI STYLE) METHOTREXATE ; STARTING AT A DOSE OF 100 MG/M 2 IV, ES...
     Route: 042
  9. METHOTREXATE. [Interacting]
     Active Substance: METHOTREXATE
     Route: 042
  10. LEUCOVORIN. [Interacting]
     Active Substance: LEUCOVORIN
     Indication: PROPHYLAXIS
     Dosage: AT HOURS 48 AND 60 POST METHOTREXATE ADMINISTRATION.
     Route: 065
  11. CYTARABINE. [Concomitant]
     Active Substance: CYTARABINE
     Indication: B PRECURSOR TYPE ACUTE LEUKAEMIA
     Route: 037

REACTIONS (5)
  - Drug interaction [Unknown]
  - Therapeutic product effect decreased [Unknown]
  - B precursor type acute leukaemia [Recovered/Resolved]
  - Leukaemia recurrent [Recovered/Resolved]
  - Neurotoxicity [Recovered/Resolved]
